FAERS Safety Report 16040803 (Version 1)
Quarter: 2019Q1

REPORT INFORMATION
  Report Type: Spontaneous
  Country: US (occurrence: US)
  Receive Date: 20190306
  Receipt Date: 20190306
  Transmission Date: 20190418
  Serious: Yes (Other)
  Sender: FDA-Public Use
  Company Number: US-SUN PHARMACEUTICAL INDUSTRIES LTD-2019R1-200916

PATIENT
  Age: 7 Month

DRUGS (1)
  1. ERGOCALCIFEROL. [Suspect]
     Active Substance: ERGOCALCIFEROL
     Indication: PRODUCT USED FOR UNKNOWN INDICATION
     Dosage: SINGLE-DAY HIGH-DOSE VITAMIN D (STOSSTHERAPY)
     Route: 065

REACTIONS (2)
  - Acute kidney injury [Unknown]
  - Accidental overdose [Unknown]
